FAERS Safety Report 14848772 (Version 1)
Quarter: 2018Q2

REPORT INFORMATION
  Report Type: Spontaneous
  Country: BE (occurrence: BE)
  Receive Date: 20180504
  Receipt Date: 20180504
  Transmission Date: 20180711
  Serious: Yes (Life-Threatening, Hospitalization, Other)
  Sender: FDA-Public Use
  Company Number: BE-MYLANLABS-2018M1028869

PATIENT
  Age: 66 Year
  Sex: Male

DRUGS (11)
  1. MAGNESIUM [Concomitant]
     Active Substance: MAGNESIUM
     Indication: PRODUCT USED FOR UNKNOWN INDICATION
  2. IRON [Concomitant]
     Active Substance: IRON
     Indication: PRODUCT USED FOR UNKNOWN INDICATION
  3. ETOPOSIDE. [Suspect]
     Active Substance: ETOPOSIDE
     Dosage: 1 UNK, UNK
     Route: 042
     Dates: start: 2016, end: 2016
  4. CISPLATIN. [Suspect]
     Active Substance: CISPLATIN
     Dosage: 1 UNK, UNK
     Route: 042
     Dates: start: 2016
  5. METHYLPREDNISOLONE. [Concomitant]
     Active Substance: METHYLPREDNISOLONE
     Indication: PRODUCT USED FOR UNKNOWN INDICATION
  6. AMITRIPTYLINE [Concomitant]
     Active Substance: AMITRIPTYLINE
     Indication: PRODUCT USED FOR UNKNOWN INDICATION
  7. CISPLATIN. [Suspect]
     Active Substance: CISPLATIN
     Indication: SMALL CELL LUNG CANCER
     Dosage: 1 UNK, CYCLE
     Route: 042
     Dates: start: 2016, end: 2016
  8. LORMETAZEPAM [Concomitant]
     Active Substance: LORMETAZEPAM
     Indication: PRODUCT USED FOR UNKNOWN INDICATION
  9. ETOPOSIDE. [Suspect]
     Active Substance: ETOPOSIDE
     Indication: SMALL CELL LUNG CANCER
     Dosage: 1 UNK, CYCLE
     Route: 042
     Dates: start: 2016
  10. HEPARIN [Concomitant]
     Active Substance: HEPARIN SODIUM
     Indication: PRODUCT USED FOR UNKNOWN INDICATION
  11. OMEPRAZOLE. [Concomitant]
     Active Substance: OMEPRAZOLE
     Indication: PRODUCT USED FOR UNKNOWN INDICATION

REACTIONS (16)
  - Multiple organ dysfunction syndrome [Unknown]
  - Vomiting [Unknown]
  - Neutropenia [Unknown]
  - Large intestine perforation [Unknown]
  - Intestinal dilatation [Unknown]
  - Condition aggravated [Unknown]
  - Nausea [Unknown]
  - Abdominal pain [Unknown]
  - Pulse abnormal [Unknown]
  - Loss of consciousness [Unknown]
  - Intestinal ischaemia [Unknown]
  - Metabolic acidosis [Unknown]
  - Septic shock [Unknown]
  - Abdominal tenderness [Unknown]
  - Blood pressure immeasurable [Unknown]
  - Acute abdomen [Unknown]

NARRATIVE: CASE EVENT DATE: 2016
